FAERS Safety Report 5144503-3 (Version None)
Quarter: 2006Q4

REPORT INFORMATION
  Report Type: 
  Country: None (occurrence: None)
  Receive Date: 20061031
  Receipt Date: 20061026
  Transmission Date: 20070319
  Serious: Yes (Other)
  Sender: FDA-Public Use
  Company Number: FRWYE343826OCT06

PATIENT
  Age: 18 Year
  Sex: Female

DRUGS (2)
  1. RAPAMUNE [Suspect]
     Indication: PROPHYLAXIS AGAINST TRANSPLANT REJECTION
     Dosage: 4 MG TOTAL DAILY ORAL
     Route: 048
     Dates: start: 20050716
  2. CELLCEPT [Suspect]
     Indication: PROPHYLAXIS AGAINST TRANSPLANT REJECTION
     Dosage: 1G 2X PER 1 DAY ORAL
     Route: 048
     Dates: start: 20050716

REACTIONS (1)
  - CARDIAC FAILURE ACUTE [None]
